FAERS Safety Report 20221343 (Version 6)
Quarter: 2022Q2

REPORT INFORMATION
  Report Type: Report from Study
  Country: RU (occurrence: RU)
  Receive Date: 20211223
  Receipt Date: 20220422
  Transmission Date: 20220720
  Serious: Yes (Hospitalization)
  Sender: FDA-Public Use
  Company Number: RU-NOVARTISPH-NVSC2021RU282673

PATIENT
  Age: 0 Year
  Sex: Male
  Weight: 7.2 kg

DRUGS (9)
  1. ZOLGENSMA [Suspect]
     Active Substance: ONASEMNOGENE ABEPARVOVEC-XIOI
     Indication: Spinal muscular atrophy
     Dosage: 41.5 ML, ONCE/SINGLE
     Route: 042
     Dates: start: 20211201, end: 20211201
  2. METHYLPREDNISOLONE [Concomitant]
     Active Substance: METHYLPREDNISOLONE
     Indication: Laboratory test normal
     Dosage: UNK
     Route: 042
  3. CEFTRIAXONUM [Concomitant]
     Indication: Laboratory test normal
     Dosage: 100 MG/KG, QD
     Route: 042
     Dates: start: 20211205, end: 20211212
  4. DEXTROSE [Concomitant]
     Active Substance: DEXTROSE
     Indication: Product used for unknown indication
     Dosage: 100 ML(IN 2 HOURS)
     Route: 065
  5. L-CARNITIN [Concomitant]
     Indication: Product used for unknown indication
     Dosage: UNK(SOL.30% 0,5ML X 2 TIMES A  DAY PER OS)
     Route: 065
     Dates: start: 20211122, end: 20211207
  6. PANCREATIN [Concomitant]
     Active Substance: PANCRELIPASE
     Indication: Product used for unknown indication
     Dosage: UNK(10000E X 1/4 OF CAPSULE IN EATING)
     Route: 065
     Dates: start: 20211122, end: 20211207
  7. METHYLPREDNISOLONE [Concomitant]
     Active Substance: METHYLPREDNISOLONE
     Indication: Product used for unknown indication
     Dosage: 1 MG/KG
     Route: 065
  8. PREDNISOLONE [Concomitant]
     Active Substance: PREDNISOLONE
     Indication: Product used for unknown indication
     Dosage: 1 MG/KG
     Route: 065
     Dates: start: 20211130
  9. PREDNISOLONE [Concomitant]
     Active Substance: PREDNISOLONE
     Dosage: 2 MG/KG
     Route: 065

REACTIONS (12)
  - Blood pressure increased [Recovered/Resolved]
  - C-reactive protein increased [Not Recovered/Not Resolved]
  - Blood urea increased [Not Recovered/Not Resolved]
  - Blood uric acid increased [Not Recovered/Not Resolved]
  - Blood bilirubin increased [Not Recovered/Not Resolved]
  - Aspartate aminotransferase increased [Recovered/Resolved]
  - Alanine aminotransferase increased [Not Recovered/Not Resolved]
  - Platelet count decreased [Recovered/Resolved]
  - Arterial wall hypertrophy [Unknown]
  - Transaminases increased [Recovered/Resolved]
  - Aspartate aminotransferase increased [Unknown]
  - Transaminases increased [Unknown]

NARRATIVE: CASE EVENT DATE: 20211207
